FAERS Safety Report 25745111 (Version 1)
Quarter: 2025Q3

REPORT INFORMATION
  Report Type: Spontaneous
  Country: EU (occurrence: EU)
  Receive Date: 20250901
  Receipt Date: 20250901
  Transmission Date: 20251020
  Serious: Yes (Life-Threatening)
  Sender: ACCORD
  Company Number: None

PATIENT
  Age: 76 Year
  Sex: Female
  Weight: 62 kg

DRUGS (5)
  1. NALTREXONE HYDROCHLORIDE [Suspect]
     Active Substance: NALTREXONE HYDROCHLORIDE
     Indication: Alcoholism
     Dosage: 1X PER DAY 1 PIECE, STRENGTH: 50 MG
     Dates: start: 20250619, end: 20250716
  2. SOTALOL [Concomitant]
     Active Substance: SOTALOL
  3. EDOXABAN [Concomitant]
     Active Substance: EDOXABAN
  4. PANTOPRAZOLE [Concomitant]
     Active Substance: PANTOPRAZOLE
  5. THIAMINE [Concomitant]
     Active Substance: THIAMINE

REACTIONS (2)
  - Cerebral infarction [Unknown]
  - Atrial fibrillation [Unknown]
